FAERS Safety Report 9283617 (Version 2)
Quarter: 2013Q2

REPORT INFORMATION
  Report Type: Spontaneous
  Country: GB (occurrence: None)
  Receive Date: 20130506
  Receipt Date: 20130506
  Transmission Date: 20140414
  Serious: Yes (Other)
  Sender: FDA-Public Use
  Company Number: AUR-APL-2013-03558

PATIENT
  Age: 43 Year
  Sex: Female
  Weight: 67.12 kg

DRUGS (1)
  1. SERTRALINE [Suspect]
     Indication: ANXIETY
     Route: 048
     Dates: start: 20121207, end: 20130214

REACTIONS (5)
  - Insomnia [None]
  - Fatigue [None]
  - Dehydration [None]
  - Sweat gland disorder [None]
  - Night sweats [None]
